FAERS Safety Report 7913436 (Version 3)
Quarter: 2012Q4

REPORT INFORMATION
  Report Type: Spontaneous
  Country: US (occurrence: None)
  Receive Date: 20110404
  Receipt Date: 20121009
  Transmission Date: 20130627
  Serious: Yes (Other)
  Sender: FDA-Public Use
  Company Number: 2011MA002608

PATIENT
  Sex: Female
  Weight: 68.04 kg

DRUGS (1)
  1. METOCLOPRAMIDE [Suspect]
     Indication: PRODUCT USED FOR UNKNOWN INDICATION
     Dates: start: 199501, end: 20040408

REACTIONS (8)
  - Tardive dyskinesia [None]
  - Dystonia [None]
  - Akathisia [None]
  - Extrapyramidal disorder [None]
  - Tremor [None]
  - Economic problem [None]
  - Emotional disorder [None]
  - Movement disorder [None]
